FAERS Safety Report 25452383 (Version 1)
Quarter: 2025Q2

REPORT INFORMATION
  Report Type: Spontaneous
  Country: AU (occurrence: AU)
  Receive Date: 20250618
  Receipt Date: 20250618
  Transmission Date: 20250717
  Serious: Yes (Other)
  Sender: CIPLA
  Company Number: AU-CIPLA (EU) LIMITED-2025AU07279

PATIENT

DRUGS (4)
  1. TERBINAFINE [Suspect]
     Active Substance: TERBINAFINE
     Indication: Rash pruritic
     Route: 065
  2. CLOTRIMAZOLE [Suspect]
     Active Substance: CLOTRIMAZOLE
     Indication: Rash pruritic
     Route: 061
  3. FLUCONAZOLE [Suspect]
     Active Substance: FLUCONAZOLE
     Indication: Rash pruritic
     Dosage: 150 MILLIGRAM, QWK (ONCE IN A WEEK)
     Route: 048
  4. BETAMETHASONE [Suspect]
     Active Substance: BETAMETHASONE
     Indication: Rash pruritic
     Route: 065

REACTIONS (2)
  - Drug resistance [Unknown]
  - Therapeutic response decreased [Unknown]
